FAERS Safety Report 24065630 (Version 1)
Quarter: 2024Q3

REPORT INFORMATION
  Report Type: Spontaneous
  Country: HR (occurrence: HR)
  Receive Date: 20240709
  Receipt Date: 20240709
  Transmission Date: 20241017
  Serious: Yes (Other)
  Sender: FRESENIUS KABI
  Company Number: HR-002147023-NVSC2021HR042645

PATIENT
  Age: 56 Year
  Sex: Female

DRUGS (62)
  1. ADALIMUMAB [Suspect]
     Active Substance: ADALIMUMAB\ISOPROPYL ALCOHOL
     Indication: Generalised pustular psoriasis
     Dosage: UNK?ROA: SUBCUTANEOUS USE
  2. ADALIMUMAB [Suspect]
     Active Substance: ADALIMUMAB\ISOPROPYL ALCOHOL
     Indication: Pustular psoriasis
     Dosage: UNK
  3. ADALIMUMAB [Suspect]
     Active Substance: ADALIMUMAB\ISOPROPYL ALCOHOL
     Dosage: UNK
  4. METHYLPREDNISOLONE [Suspect]
     Active Substance: METHYLPREDNISOLONE
     Indication: Generalised pustular psoriasis
     Dosage: 8 MG, QD
  5. METHYLPREDNISOLONE [Suspect]
     Active Substance: METHYLPREDNISOLONE
     Indication: Pustular psoriasis
  6. ACITRETIN [Suspect]
     Active Substance: ACITRETIN
     Indication: Generalised pustular psoriasis
     Dosage: UNK
  7. ACITRETIN [Suspect]
     Active Substance: ACITRETIN
     Indication: Pustular psoriasis
     Dosage: UNK
     Route: 065
  8. ACITRETIN [Suspect]
     Active Substance: ACITRETIN
     Dosage: UNK
     Route: 065
  9. ACITRETIN [Suspect]
     Active Substance: ACITRETIN
     Dosage: UNK
     Route: 065
  10. ACITRETIN [Suspect]
     Active Substance: ACITRETIN
     Dosage: UNK
     Route: 065
  11. ACITRETIN [Suspect]
     Active Substance: ACITRETIN
     Dosage: UNK
     Route: 065
  12. ACITRETIN [Suspect]
     Active Substance: ACITRETIN
     Dosage: UNK
     Route: 065
  13. COSENTYX [Suspect]
     Active Substance: SECUKINUMAB
     Indication: Generalised pustular psoriasis
     Dosage: FORM: SOLUTION FOR INJECTION
     Route: 065
  14. COSENTYX [Suspect]
     Active Substance: SECUKINUMAB
     Indication: Pustular psoriasis
     Dosage: FORM: SOLUTION FOR INJECTION
     Route: 065
  15. COSENTYX [Suspect]
     Active Substance: SECUKINUMAB
     Dosage: UNK?FORM: SOLUTION FOR INJECTION
     Route: 065
  16. COSENTYX [Suspect]
     Active Substance: SECUKINUMAB
     Dosage: UNK?FORM: SOLUTION FOR INJECTION
     Route: 065
  17. COSENTYX [Suspect]
     Active Substance: SECUKINUMAB
     Dosage: UNK?FORM: SOLUTION FOR INJECTION
     Route: 065
  18. LORATADINE [Suspect]
     Active Substance: LORATADINE
     Indication: Product used for unknown indication
     Dosage: UNK
  19. LORATADINE [Suspect]
     Active Substance: LORATADINE
     Dosage: UNK
  20. LORATADINE [Suspect]
     Active Substance: LORATADINE
     Dosage: UNK
  21. APREMILAST [Suspect]
     Active Substance: APREMILAST
     Indication: Generalised pustular psoriasis
     Dosage: UNK?ROA: UNKNOWN
  22. APREMILAST [Suspect]
     Active Substance: APREMILAST
     Indication: Pustular psoriasis
     Dosage: UNK?ROA: UNKNOWN
  23. APREMILAST [Suspect]
     Active Substance: APREMILAST
     Dosage: UNK
  24. IBUPROFEN [Suspect]
     Active Substance: IBUPROFEN
     Indication: Product used for unknown indication
     Dosage: UNK
  25. IBUPROFEN [Suspect]
     Active Substance: IBUPROFEN
     Dosage: UNK
  26. IBUPROFEN [Suspect]
     Active Substance: IBUPROFEN
     Dosage: UNK
  27. KETOPROFEN [Suspect]
     Active Substance: KETOPROFEN
     Indication: Product used for unknown indication
     Dosage: ROA-20026000
  28. KETOPROFEN [Suspect]
     Active Substance: KETOPROFEN
     Dosage: UNK?ROUTE INTRACARDIAC USE
  29. KETOPROFEN [Suspect]
     Active Substance: KETOPROFEN
     Dosage: UNK?ROUTE INTRACARDIAC USE
  30. KETOPROFEN [Suspect]
     Active Substance: KETOPROFEN
     Dosage: UNK?ROUTE INTRACARDIAC USE
  31. CETIRIZINE HYDROCHLORIDE [Suspect]
     Active Substance: CETIRIZINE HYDROCHLORIDE
     Indication: Product used for unknown indication
     Dosage: 10 MILIGRAM?DOSAGE FORM: TABLET
  32. CETIRIZINE HYDROCHLORIDE [Suspect]
     Active Substance: CETIRIZINE HYDROCHLORIDE
     Dosage: 10 MG 1+1+2 TBL.?DOSAGE FORM: TABLET
  33. BILASTINE [Suspect]
     Active Substance: BILASTINE
     Indication: Product used for unknown indication
     Dosage: UNK?DOSAGE FORM: TABLET?ROA: ORAL
  34. BILASTINE [Suspect]
     Active Substance: BILASTINE
     Dosage: UNK?DOSAGE FORM: TABLET
  35. BILASTINE [Suspect]
     Active Substance: BILASTINE
     Dosage: UNK?DOSAGE FORM: TABLET
  36. BILASTINE [Suspect]
     Active Substance: BILASTINE
     Dosage: UNK?DOSAGE FORM: TABLET
  37. PANTOPRAZOLE [Suspect]
     Active Substance: PANTOPRAZOLE
     Indication: Product used for unknown indication
     Dosage: 40 MG,?QD (20 MG, BID)
  38. PANTOPRAZOLE [Suspect]
     Active Substance: PANTOPRAZOLE
     Dosage: 40 MG?20 MG, BID
  39. PANTOPRAZOLE [Suspect]
     Active Substance: PANTOPRAZOLE
     Dosage: 40 MG?20 MG, BID
  40. PANTOPRAZOLE [Suspect]
     Active Substance: PANTOPRAZOLE
     Dosage: UNK
  41. PANTOPRAZOLE [Suspect]
     Active Substance: PANTOPRAZOLE
     Dosage: UNK
  42. PANTOPRAZOLE [Suspect]
     Active Substance: PANTOPRAZOLE
     Dosage: 20 MG BID
  43. PANTOPRAZOLE [Suspect]
     Active Substance: PANTOPRAZOLE
     Dosage: UNK
  44. PANTOPRAZOLE [Suspect]
     Active Substance: PANTOPRAZOLE
     Dosage: 20 MG BID
  45. RISANKIZUMAB [Suspect]
     Active Substance: RISANKIZUMAB
     Indication: Generalised pustular psoriasis
     Route: 065
  46. RISANKIZUMAB [Suspect]
     Active Substance: RISANKIZUMAB
     Indication: Pustular psoriasis
     Dosage: UNK UNK, Q3MONTHS?ROA: SUBCUTAENOUS
  47. RISANKIZUMAB [Suspect]
     Active Substance: RISANKIZUMAB
     Dosage: UNK (UNK, Q3MO)?ROUTE: SUBCUTANEOUS
  48. PIOGLITAZONE [Suspect]
     Active Substance: PIOGLITAZONE
     Indication: Product used for unknown indication
     Route: 065
  49. PIOGLITAZONE [Suspect]
     Active Substance: PIOGLITAZONE
     Route: 065
  50. PIOGLITAZONE [Suspect]
     Active Substance: PIOGLITAZONE
     Route: 065
  51. PIOGLITAZONE [Suspect]
     Active Substance: PIOGLITAZONE
     Dosage: UNK
  52. PIOGLITAZONE [Suspect]
     Active Substance: PIOGLITAZONE
     Dosage: UNK
  53. PIOGLITAZONE [Suspect]
     Active Substance: PIOGLITAZONE
     Dosage: UNK
  54. DESLORATADINE [Suspect]
     Active Substance: DESLORATADINE
     Indication: Product used for unknown indication
     Route: 065
  55. DESLORATADINE [Suspect]
     Active Substance: DESLORATADINE
     Dosage: 10 MG, 1+1+2 TB(TABLET)?FORM: TABLET
  56. DESLORATADINE [Suspect]
     Active Substance: DESLORATADINE
     Route: 065
  57. DICLOFENAC [Suspect]
     Active Substance: DICLOFENAC
     Indication: Product used for unknown indication
     Route: 065
  58. DICLOFENAC [Suspect]
     Active Substance: DICLOFENAC
     Dosage: UNK
  59. DICLOFENAC [Suspect]
     Active Substance: DICLOFENAC
     Dosage: UNK
  60. DICLOFENAC [Suspect]
     Active Substance: DICLOFENAC
     Dosage: UNK
  61. METHOTREXATE [Suspect]
     Active Substance: METHOTREXATE
     Indication: Pustular psoriasis
     Dosage: 15 MG
  62. COSENTYX PRE FILLED SYRINGE [Secukinumab] [Concomitant]
     Indication: Generalised pustular psoriasis
     Route: 065

REACTIONS (14)
  - Diarrhoea [Recovered/Resolved]
  - Urticaria [Unknown]
  - Weight decreased [Recovering/Resolving]
  - Erythema [Recovering/Resolving]
  - Face oedema [Unknown]
  - Inflammatory bowel disease [Recovered/Resolved]
  - Fatigue [Unknown]
  - Asthenia [Unknown]
  - Product use in unapproved indication [Unknown]
  - Myalgia [Unknown]
  - Arthralgia [Unknown]
  - Drug ineffective [Unknown]
  - Off label use [Unknown]
  - Faecal calprotectin increased [Unknown]

NARRATIVE: CASE EVENT DATE: 20191101
